FAERS Safety Report 16581643 (Version 1)
Quarter: 2019Q3

REPORT INFORMATION
  Report Type: Spontaneous
  Country: US (occurrence: US)
  Receive Date: 20190716
  Receipt Date: 20190716
  Transmission Date: 20191004
  Serious: No
  Sender: FDA-Public Use
  Company Number: US-US WORLDMEDS, LLC-USW201904-000820

PATIENT
  Age: 62 Year
  Sex: Female

DRUGS (7)
  1. XADAGO [Suspect]
     Active Substance: SAFINAMIDE MESYLATE
     Indication: PARKINSON^S DISEASE
     Dates: start: 201903
  2. BOTOX [Concomitant]
     Active Substance: ONABOTULINUMTOXINA
  3. OMEPRAZOLE. [Concomitant]
     Active Substance: OMEPRAZOLE
  4. SIMVASTATIN. [Concomitant]
     Active Substance: SIMVASTATIN
  5. XANAX [Concomitant]
     Active Substance: ALPRAZOLAM
  6. DICLOFENAC [Concomitant]
     Active Substance: DICLOFENAC
  7. LEXAPRO [Suspect]
     Active Substance: ESCITALOPRAM OXALATE
     Indication: DEPRESSION

REACTIONS (6)
  - Mania [Recovered/Resolved]
  - Dizziness [Recovered/Resolved]
  - Dyskinesia [Recovered/Resolved]
  - Flushing [Recovered/Resolved]
  - Confusional state [Recovered/Resolved]
  - Drug interaction [Unknown]
